FAERS Safety Report 18080050 (Version 1)
Quarter: 2020Q3

REPORT INFORMATION
  Report Type: Spontaneous
  Country: US (occurrence: US)
  Receive Date: 20200728
  Receipt Date: 20200728
  Transmission Date: 20201103
  Serious: No
  Sender: FDA-Public Use
  Company Number: None

PATIENT
  Age: 54 Year
  Sex: Male
  Weight: 83.01 kg

DRUGS (15)
  1. ZOFRAN [Concomitant]
     Active Substance: ONDANSETRON HYDROCHLORIDE
  2. AKYNZEO [Suspect]
     Active Substance: NETUPITANT\PALONOSETRON HYDROCHLORIDE
     Indication: PANCREATIC CARCINOMA
     Dosage: ?          OTHER FREQUENCY:1HR PRIOR TO CHEMO;?
     Route: 048
     Dates: start: 20191118, end: 20200728
  3. DEXAMETHASONE. [Concomitant]
     Active Substance: DEXAMETHASONE
  4. DICYCLOMINE [Concomitant]
     Active Substance: DICYCLOMINE HYDROCHLORIDE
  5. CREON [Concomitant]
     Active Substance: PANCRELIPASE AMYLASE\PANCRELIPASE LIPASE\PANCRELIPASE PROTEASE
  6. ABRAXANE [Concomitant]
     Active Substance: PACLITAXEL
  7. GEMCITABINE. [Concomitant]
     Active Substance: GEMCITABINE
  8. EMBEDA [Concomitant]
     Active Substance: MORPHINE SULFATE\NALTREXONE HYDROCHLORIDE
  9. LOMOTIL [Concomitant]
     Active Substance: ATROPINE SULFATE\DIPHENOXYLATE HYDROCHLORIDE
  10. OXYCODONE [Concomitant]
     Active Substance: OXYCODONE
  11. LYRICA [Concomitant]
     Active Substance: PREGABALIN
  12. MIRTAZAPINE. [Concomitant]
     Active Substance: MIRTAZAPINE
  13. MOVANTIK [Concomitant]
     Active Substance: NALOXEGOL OXALATE
  14. PANCREAZE [Concomitant]
     Active Substance: PANCRELIPASE AMYLASE\PANCRELIPASE LIPASE\PANCRELIPASE PROTEASE
  15. PROCHLORPERAZINE. [Concomitant]
     Active Substance: PROCHLORPERAZINE

REACTIONS (1)
  - Disease progression [None]

NARRATIVE: CASE EVENT DATE: 20200728
